FAERS Safety Report 7197175-0 (Version None)
Quarter: 2010Q4

REPORT INFORMATION
  Report Type: 
  Country: None (occurrence: None)
  Receive Date: 20101224
  Receipt Date: 20101026
  Transmission Date: 20110411
  Serious: Yes (Hospitalization, Disabling)
  Sender: FDA-Public Use
  Company Number: PHHO2009DE11363

PATIENT
  Sex: Male
  Weight: 82 kg

DRUGS (2)
  1. AMN107 AMN+CAP [Suspect]
     Indication: CHRONIC MYELOID LEUKAEMIA
     Dosage: 300 MG BID/600 BID
     Route: 048
     Dates: start: 20071113
  2. PANTOZOL [Concomitant]

REACTIONS (7)
  - ARTERIAL STENT INSERTION [None]
  - ARTERIOSCLEROSIS [None]
  - FEMORAL ARTERIAL STENOSIS [None]
  - INTERMITTENT CLAUDICATION [None]
  - LEG AMPUTATION [None]
  - PERIPHERAL ARTERIAL OCCLUSIVE DISEASE [None]
  - VASCULAR GRAFT [None]
